FAERS Safety Report 8985939 (Version 1)
Quarter: 2012Q4

REPORT INFORMATION
  Report Type: 
  Country: US (occurrence: US)
  Receive Date: 20121226
  Receipt Date: 20121226
  Transmission Date: 20130627
  Serious: Yes (Hospitalization)
  Sender: FDA-Public Use
  Company Number: US-JNJFOC-20121210936

PATIENT
  Sex: Male

DRUGS (2)
  1. ZYRTEC-D [Suspect]
     Route: 065
  2. ZYRTEC-D [Suspect]
     Indication: MULTIPLE ALLERGIES
     Route: 065

REACTIONS (4)
  - Throat tightness [Unknown]
  - Rash generalised [Unknown]
  - Dyspnoea [Unknown]
  - Anaphylactic reaction [Unknown]
